FAERS Safety Report 8478547-0 (Version None)
Quarter: 2012Q2

REPORT INFORMATION
  Report Type: 
  Country: None (occurrence: None)
  Receive Date: 20120629
  Receipt Date: 20120621
  Transmission Date: 20120825
  Serious: Yes (Other)
  Sender: FDA-Public Use
  Company Number: US-ABBOTT-11P-163-0880180-00

PATIENT
  Sex: Male
  Weight: 78 kg

DRUGS (15)
  1. DICYCLOMINE [Concomitant]
     Indication: MUSCLE SPASMS
     Dosage: 10MG OR 40MG DAILY
  2. MULTI-VITAMIN [Concomitant]
     Indication: PRODUCT USED FOR UNKNOWN INDICATION
  3. ATIVAN [Concomitant]
     Indication: ANXIETY
  4. HUMIRA [Suspect]
     Indication: CROHN'S DISEASE
     Dates: start: 20110930
  5. PHENERGAN HCL [Suspect]
     Indication: GASTROENTERITIS VIRAL
     Dates: start: 20111123
  6. STOOL SOFTENER [Concomitant]
     Indication: PRODUCT USED FOR UNKNOWN INDICATION
  7. ONDANSETRON [Concomitant]
     Indication: NAUSEA
  8. NEXIUM [Concomitant]
     Indication: DYSPEPSIA
     Dosage: DAILY DOSE: 40MG
  9. IMURAN [Concomitant]
     Indication: PRODUCT USED FOR UNKNOWN INDICATION
  10. LORTAB [Concomitant]
     Indication: PRODUCT USED FOR UNKNOWN INDICATION
  11. HUMIRA [Suspect]
  12. OXYCODONE HCL [Suspect]
     Indication: GASTROENTERITIS VIRAL
     Dosage: AS NEEDED EVERY 6 HOURS
     Dates: start: 20111123
  13. CIPROFLOXACIN HCL [Concomitant]
     Indication: PRODUCT USED FOR UNKNOWN INDICATION
  14. FLAGYL [Concomitant]
     Indication: PRODUCT USED FOR UNKNOWN INDICATION
  15. PREDNISONE [Concomitant]
     Indication: PRODUCT USED FOR UNKNOWN INDICATION
     Dosage: DAILY DOSE: 10MG

REACTIONS (5)
  - CROHN'S DISEASE [None]
  - COLITIS [None]
  - GASTROENTERITIS VIRAL [None]
  - SKIN WARM [None]
  - PAIN [None]
